FAERS Safety Report 9680026 (Version 1)
Quarter: 2013Q4

REPORT INFORMATION
  Report Type: Spontaneous
  Country: US (occurrence: US)
  Receive Date: 20131110
  Receipt Date: 20131110
  Transmission Date: 20140711
  Serious: Yes (Hospitalization)
  Sender: FDA-Public Use
  Company Number: US-SA-2013SA114528

PATIENT
  Age: 80 Year
  Sex: Male

DRUGS (5)
  1. PLAVIX [Suspect]
     Route: 065
     Dates: start: 201212
  2. ELIQUIS [Suspect]
     Route: 065
  3. TRICLOSAN [Concomitant]
  4. LISINOPRIL [Concomitant]
  5. METOPROLOL [Concomitant]

REACTIONS (4)
  - Cardiovascular disorder [Unknown]
  - Adverse event [Unknown]
  - Blood creatinine increased [Unknown]
  - Contusion [Unknown]
